FAERS Safety Report 15439489 (Version 2)
Quarter: 2019Q1

REPORT INFORMATION
  Report Type: Report from Study
  Country: None (occurrence: BR)
  Receive Date: 20180928
  Receipt Date: 20190107
  Transmission Date: 20190417
  Serious: Yes (Hospitalization)
  Sender: FDA-Public Use
  Company Number: BR-ABBVIE-18K-020-2498376-00

PATIENT
  Age: 43 Year
  Sex: Male
  Weight: 65 kg

DRUGS (4)
  1. HUMIRA [Suspect]
     Active Substance: ADALIMUMAB
     Route: 058
     Dates: start: 201201, end: 20180727
  2. HUMIRA [Suspect]
     Active Substance: ADALIMUMAB
     Indication: CROHN^S DISEASE
     Dosage: LOADING DOSE??WEEK 0
     Route: 058
     Dates: start: 20120101, end: 20120101
  3. HUMIRA [Suspect]
     Active Substance: ADALIMUMAB
     Route: 058
     Dates: start: 20180827
  4. HUMIRA [Suspect]
     Active Substance: ADALIMUMAB
     Dosage: LOADING DOSE??WEEK 2
     Route: 058
     Dates: start: 201201, end: 201201

REACTIONS (5)
  - Gastrointestinal wall thickening [Recovered/Resolved]
  - Crohn^s disease [Recovered/Resolved]
  - Prolapse [Not Recovered/Not Resolved]
  - Gastrointestinal infection [Recovered/Resolved]
  - Myringitis [Recovered/Resolved]

NARRATIVE: CASE EVENT DATE: 2017
